FAERS Safety Report 17767695 (Version 7)
Quarter: 2025Q3

REPORT INFORMATION
  Report Type: Spontaneous
  Country: EU (occurrence: EU)
  Receive Date: 20200511
  Receipt Date: 20250710
  Transmission Date: 20251021
  Serious: Yes (Hospitalization, Other)
  Sender: NOVARTIS
  Company Number: NVSC2020DE126366

PATIENT
  Sex: Female
  Weight: 77 kg

DRUGS (8)
  1. VALSARTAN [Suspect]
     Active Substance: VALSARTAN
     Indication: Hypertension
     Dosage: 80 MG, BID
     Route: 065
     Dates: start: 201511, end: 201810
  2. VALSARTAN [Suspect]
     Active Substance: VALSARTAN
     Route: 065
  3. CANDESARTAN [Concomitant]
     Active Substance: CANDESARTAN
     Indication: Product used for unknown indication
     Dosage: 80 MG, QD (MORNING)1-0-0
     Route: 065
     Dates: start: 201810
  4. BISOPROLOL FUMARATE\HYDROCHLOROTHIAZIDE [Concomitant]
     Active Substance: BISOPROLOL FUMARATE\HYDROCHLOROTHIAZIDE
     Indication: Product used for unknown indication
     Dosage: 5 MG, QD (MORNING) 1-0-0
     Route: 065
  5. EUTHYROX [Concomitant]
     Active Substance: LEVOTHYROXINE SODIUM
     Indication: Product used for unknown indication
     Route: 065
  6. Novalgin [Concomitant]
     Indication: Product used for unknown indication
     Route: 065
  7. DIENOGEST\ETHINYL ESTRADIOL [Concomitant]
     Active Substance: DIENOGEST\ETHINYL ESTRADIOL
     Indication: Product used for unknown indication
     Route: 065
  8. IBUPROFEN [Concomitant]
     Active Substance: IBUPROFEN
     Indication: Product used for unknown indication
     Route: 065

REACTIONS (14)
  - Panic attack [Unknown]
  - Suicidal ideation [Unknown]
  - Gastroenteritis [Recovered/Resolved]
  - Headache [Unknown]
  - Depression [Not Recovered/Not Resolved]
  - Somatic symptom disorder [Unknown]
  - Sleep disorder [Unknown]
  - Anxiety disorder [Unknown]
  - Mental disorder [Not Recovered/Not Resolved]
  - Nervousness [Unknown]
  - Skin disorder [Not Recovered/Not Resolved]
  - Gastrointestinal disorder [Not Recovered/Not Resolved]
  - Intervertebral disc protrusion [Unknown]
  - Diarrhoea [Unknown]

NARRATIVE: CASE EVENT DATE: 20150101
